FAERS Safety Report 7819063-6 (Version None)
Quarter: 2011Q4

REPORT INFORMATION
  Report Type: 
  Country: None (occurrence: None)
  Receive Date: 20111018
  Receipt Date: 20111010
  Transmission Date: 20120403
  Serious: Yes (Other)
  Sender: FDA-Public Use
  Company Number: FR-UCBSA-027104

PATIENT
  Age: 36 Year
  Sex: Female
  Weight: 87 kg

DRUGS (1)
  1. KEPPRA [Suspect]
     Indication: EPILEPSY
     Route: 048
     Dates: start: 20090701

REACTIONS (2)
  - CAESAREAN SECTION [None]
  - PREGNANCY [None]
